FAERS Safety Report 5908236-5 (Version None)
Quarter: 2008Q4

REPORT INFORMATION
  Report Type: 
  Country: None (occurrence: None)
  Receive Date: 20081006
  Receipt Date: 20080925
  Transmission Date: 20090506
  Serious: Yes (Hospitalization)
  Sender: FDA-Public Use
  Company Number: US-JNJFOC-20080906727

PATIENT
  Age: 72 Year
  Sex: Male
  Weight: 78.93 kg

DRUGS (5)
  1. LEVAQUIN [Suspect]
     Indication: PNEUMONIA
     Route: 048
  2. LIPITOR [Concomitant]
     Indication: BLOOD CHOLESTEROL
     Route: 065
  3. FLEXERIL [Concomitant]
     Indication: FIBROMYALGIA
     Dosage: AS NEEDED
     Route: 065
  4. TRAZODONE HCL [Concomitant]
     Indication: DEPRESSION
     Dosage: AT BED TIME
     Route: 065
  5. ALLEGRA-D [Concomitant]
     Indication: SEASONAL ALLERGY
     Dosage: 1 TAB, TWICE DAILY
     Route: 065

REACTIONS (2)
  - HOSPITALISATION [None]
  - TENDONITIS [None]
